FAERS Safety Report 17885114 (Version 1)
Quarter: 2020Q2

REPORT INFORMATION
  Report Type: Spontaneous
  Country: US (occurrence: US)
  Receive Date: 20200611
  Receipt Date: 20200611
  Transmission Date: 20200714
  Serious: Yes (Hospitalization)
  Sender: FDA-Public Use
  Company Number: None

PATIENT
  Age: 75 Year
  Sex: Male
  Weight: 79.8 kg

DRUGS (5)
  1. ELIGARD [Suspect]
     Active Substance: LEUPROLIDE ACETATE
     Indication: PROSTATE CANCER
     Dosage: ?          OTHER FREQUENCY:ONCE;?
     Route: 058
     Dates: start: 20200601, end: 20200601
  2. ATORVASTATIN [Concomitant]
     Active Substance: ATORVASTATIN
     Dates: start: 20140929
  3. CITALOPRAM [Concomitant]
     Active Substance: CITALOPRAM HYDROBROMIDE
     Dates: start: 20070614
  4. LOSARTAN. [Concomitant]
     Active Substance: LOSARTAN
     Dates: start: 20170226
  5. AREDS2 MULTIVITAMIN [Concomitant]
     Dates: start: 20140422

REACTIONS (5)
  - Ischaemic stroke [None]
  - Dysarthria [None]
  - Nausea [None]
  - Ataxia [None]
  - Vomiting [None]

NARRATIVE: CASE EVENT DATE: 20200610
